FAERS Safety Report 12634640 (Version 1)
Quarter: 2016Q3

REPORT INFORMATION
  Report Type: Other
  Country: GB (occurrence: GB)
  Receive Date: 20160808
  Receipt Date: 20160808
  Transmission Date: 20161109
  Serious: Yes (Hospitalization)
  Sender: FDA-Public Use
  Company Number: GB-TAKEDA-2016TJP016576

PATIENT
  Age: 79 Year
  Sex: Male

DRUGS (16)
  1. RANITIDINE. [Concomitant]
     Active Substance: RANITIDINE
     Dosage: 150 MG, QD (IN THE MORNING)
     Dates: start: 20160623
  2. LANSOPRAZOLE. [Suspect]
     Active Substance: LANSOPRAZOLE
     Indication: PRODUCT USED FOR UNKNOWN INDICATION
     Dosage: 15 MG, QD
     Route: 065
     Dates: end: 20160622
  3. ASPIRIN (E.C.) [Concomitant]
     Active Substance: ASPIRIN
     Dosage: 75 MG, QD
  4. CYANOCOBALAMIN. [Concomitant]
     Active Substance: CYANOCOBALAMIN
     Dosage: 50 ?G, UNK
  5. SYMBICORT [Concomitant]
     Active Substance: BUDESONIDE\FORMOTEROL FUMARATE DIHYDRATE
     Dosage: (400/12), BID
  6. ALENDRONIC ACID [Concomitant]
     Active Substance: ALENDRONIC ACID
     Dosage: 70 MG, 1/WEEK
  7. FOLIC ACID. [Concomitant]
     Active Substance: FOLIC ACID
     Dosage: 5 MG, QD
  8. SALAMOL                            /00139501/ [Concomitant]
     Dosage: 100 ?G, QID
     Route: 055
  9. VERAPAMIL [Concomitant]
     Active Substance: VERAPAMIL HYDROCHLORIDE
     Dosage: 120 MG, QD
     Dates: start: 20160608
  10. FLUCLOXACILLIN [Concomitant]
     Active Substance: FLUCLOXACILLIN
     Dosage: 500 MG, QID
     Dates: start: 20160609, end: 20160713
  11. RAMIPRIL. [Concomitant]
     Active Substance: RAMIPRIL
     Dosage: 2.5 MG, QD (AT NIGHT)
     Dates: start: 20160608
  12. SALBUTAMOL [Concomitant]
     Active Substance: ALBUTEROL
     Dosage: 2.5MG/2.5ML NEBULISER LIQUID UNIT DOSE VIALS
  13. TIOTROPIUM BROMIDE [Concomitant]
     Active Substance: TIOTROPIUM BROMIDE
     Dosage: 180 ?G, QD (IN THE MORNING)
     Route: 055
  14. ADCAL D3 [Concomitant]
     Active Substance: CALCIUM CARBONATE\CHOLECALCIFEROL
     Dosage: UNK UNK, BID
  15. ATORVASTATIN [Concomitant]
     Active Substance: ATORVASTATIN
     Dosage: 20 MG, QD (AT NIGHT)
  16. CARBOCISTEINE [Concomitant]
     Active Substance: CARBOCYSTEINE
     Dosage: 750 MG, TID

REACTIONS (4)
  - Infective exacerbation of chronic obstructive airways disease [Unknown]
  - Hyponatraemia [Recovered/Resolved]
  - Dyspnoea [Unknown]
  - Productive cough [Unknown]

NARRATIVE: CASE EVENT DATE: 20160621
